FAERS Safety Report 22081442 (Version 2)
Quarter: 2023Q1

REPORT INFORMATION
  Report Type: Report from Study
  Country: US (occurrence: US)
  Receive Date: 20230310
  Receipt Date: 20230331
  Transmission Date: 20230418
  Serious: Yes (Other)
  Sender: FDA-Public Use
  Company Number: US-TAKEDA-2023TUS016781

PATIENT
  Sex: Female

DRUGS (3)
  1. MARIBAVIR [Suspect]
     Active Substance: MARIBAVIR
     Indication: Cytomegalovirus infection
     Dosage: UNK
     Route: 065
  2. MARIBAVIR [Suspect]
     Active Substance: MARIBAVIR
     Indication: Post procedural infection
     Dosage: 400 MILLIGRAM, BID
     Route: 048
     Dates: start: 20230220
  3. VALCYTE [Suspect]
     Active Substance: VALGANCICLOVIR HYDROCHLORIDE
     Indication: Product used for unknown indication
     Dosage: UNK
     Route: 065

REACTIONS (6)
  - Cytomegalovirus infection reactivation [Unknown]
  - White blood cell count decreased [Unknown]
  - Injury [Unknown]
  - Dysgeusia [Unknown]
  - Product use issue [Unknown]
  - Inappropriate schedule of product administration [Unknown]
